FAERS Safety Report 7925908 (Version 5)
Quarter: 2014Q1

REPORT INFORMATION
  Report Type: Spontaneous
  Country: US (occurrence: US)
  Receive Date: 20110502
  Receipt Date: 20140220
  Transmission Date: 20141002
  Serious: Yes (Hospitalization)
  Sender: FDA-Public Use
  Company Number: US-ASTRAZENECA-2010SE44130

PATIENT
  Age: 60 Year
  Sex: Female
  Weight: 80.7 kg

DRUGS (9)
  1. NEXIUM [Suspect]
     Indication: GASTROOESOPHAGEAL REFLUX DISEASE
     Route: 048
     Dates: start: 2001
  2. NEXIUM [Suspect]
     Indication: DYSPEPSIA
     Route: 048
     Dates: start: 2001
  3. NEXIUM [Suspect]
     Indication: HIATUS HERNIA
     Route: 048
     Dates: start: 2001
  4. TOPROL XL [Suspect]
     Indication: HYPERTENSION
     Route: 048
     Dates: start: 2005
  5. SYNTHROID [Concomitant]
     Indication: THYROID DISORDER
     Route: 048
     Dates: start: 2005
  6. ESTRADIOL [Concomitant]
     Indication: HORMONE REPLACEMENT THERAPY
     Route: 048
     Dates: start: 2001
  7. ESCITALOPRAM [Concomitant]
     Indication: ANTIDEPRESSANT THERAPY
     Route: 048
     Dates: start: 2013
  8. LOSARTAN [Concomitant]
     Indication: ANGINA PECTORIS
     Route: 048
     Dates: start: 2012
  9. HYDROCODONE [Concomitant]
     Indication: ARTHRALGIA
     Dosage: 7.5 MG, 325 MG BID PRN
     Route: 048
     Dates: start: 2010

REACTIONS (10)
  - Angina pectoris [Recovered/Resolved]
  - Tibia fracture [Unknown]
  - Hand fracture [Unknown]
  - Fibula fracture [Unknown]
  - Gastrooesophageal reflux disease [Unknown]
  - Diarrhoea [Unknown]
  - Dyspepsia [Unknown]
  - Chest pain [Unknown]
  - Intentional drug misuse [Unknown]
  - Drug dose omission [Unknown]
